FAERS Safety Report 12310482 (Version 1)
Quarter: 2016Q2

REPORT INFORMATION
  Report Type: Spontaneous
  Country: JP (occurrence: JP)
  Receive Date: 20160427
  Receipt Date: 20160427
  Transmission Date: 20160815
  Serious: Yes (Life-Threatening, Other)
  Sender: FDA-Public Use
  Company Number: JP-PFIZER INC-2016188977

PATIENT
  Age: 43 Year
  Sex: Female

DRUGS (6)
  1. CHAMPIX [Suspect]
     Active Substance: VARENICLINE TARTRATE
     Indication: SMOKING CESSATION THERAPY
     Dosage: UNK
     Route: 048
     Dates: start: 20160216, end: 2016
  2. LENDORMIN [Suspect]
     Active Substance: BROTIZOLAM
     Indication: INSOMNIA
     Dosage: 0.25 MG, DAILY
     Route: 048
     Dates: start: 20160216
  3. LENDORMIN [Suspect]
     Active Substance: BROTIZOLAM
     Dosage: 1 MG, SINGLE
     Route: 048
     Dates: start: 20160329, end: 20160329
  4. TAKECAB [Concomitant]
     Active Substance: VONOPRAZAN FUMURATE
     Dosage: UNK
  5. AZILVA [Concomitant]
     Active Substance: AZILSARTAN KAMEDOXOMIL
     Dosage: UNK
  6. CHAMPIX [Suspect]
     Active Substance: VARENICLINE TARTRATE
     Dosage: 2 MG, DAILY
     Route: 048
     Dates: start: 2016, end: 201603

REACTIONS (6)
  - Loss of consciousness [Unknown]
  - Suicide attempt [Recovered/Resolved]
  - Amnesia [Unknown]
  - Insomnia [Unknown]
  - Fall [Unknown]
  - Stress [Unknown]

NARRATIVE: CASE EVENT DATE: 201603
